FAERS Safety Report 5375668-6 (Version None)
Quarter: 2007Q2

REPORT INFORMATION
  Report Type: 
  Country: None (occurrence: None)
  Receive Date: 20070628
  Receipt Date: 20070622
  Transmission Date: 20071010
  Serious: Yes (Hospitalization)
  Sender: FDA-Public Use
  Company Number: 2007-02827

PATIENT
  Age: 83 Year
  Sex: Female
  Weight: 63 kg

DRUGS (5)
  1. MINOCYCLINE HYDROCHLORIDE [Suspect]
     Indication: EYE INFECTION BACTERIAL
     Dosage: 1 CAPSUL, DAILY, ORAL
     Route: 048
     Dates: start: 20070326, end: 20070404
  2. HYZAAR [Concomitant]
  3. SYNTHROID [Concomitant]
  4. K-DUR, 10 MEQ [Concomitant]
  5. ASPIRIN [Concomitant]

REACTIONS (10)
  - BALANCE DISORDER [None]
  - CYANOSIS [None]
  - DIZZINESS [None]
  - EPILEPSY [None]
  - FALL [None]
  - FEELING HOT [None]
  - GRAND MAL CONVULSION [None]
  - IRRITABILITY [None]
  - SLEEP DISORDER [None]
  - TREMOR [None]
